FAERS Safety Report 24215066 (Version 2)
Quarter: 2024Q4

REPORT INFORMATION
  Report Type: Spontaneous
  Country: US (occurrence: US)
  Receive Date: 20240816
  Receipt Date: 20241001
  Transmission Date: 20250115
  Serious: Yes (Hospitalization)
  Sender: IBSA INSTITUT BIOCHIMIQUE
  Company Number: US-IBSA PHARMA INC.-2024IBS000362

PATIENT

DRUGS (1)
  1. LIDOCAINE [Suspect]
     Active Substance: LIDOCAINE
     Indication: Neuropathy peripheral
     Dosage: UNK
     Route: 061

REACTIONS (6)
  - Epistaxis [Recovered/Resolved]
  - Therapeutic product effective for unapproved indication [Unknown]
  - Product adhesion issue [Unknown]
  - Product physical consistency issue [Unknown]
  - Product dose omission issue [Unknown]
  - Off label use [Unknown]

NARRATIVE: CASE EVENT DATE: 20240701
